FAERS Safety Report 24120492 (Version 2)
Quarter: 2024Q3

REPORT INFORMATION
  Report Type: Report from Study
  Country: US (occurrence: US)
  Receive Date: 20240722
  Receipt Date: 20240805
  Transmission Date: 20241017
  Serious: Yes (Other)
  Sender: ABBVIE
  Company Number: US-ABBVIE-5844883

PATIENT
  Sex: Male

DRUGS (1)
  1. SKYRIZI [Suspect]
     Active Substance: RISANKIZUMAB-RZAA
     Indication: Psoriasis
     Route: 058
     Dates: start: 20231004

REACTIONS (7)
  - Cerebrovascular accident [Recovered/Resolved]
  - Vertigo [Not Recovered/Not Resolved]
  - Head injury [Recovering/Resolving]
  - Anxiety [Not Recovered/Not Resolved]
  - Drug ineffective [Recovering/Resolving]
  - Constipation [Recovering/Resolving]
  - Seizure [Unknown]
